FAERS Safety Report 6651907-6 (Version None)
Quarter: 2010Q1

REPORT INFORMATION
  Report Type: 
  Country: None (occurrence: None)
  Receive Date: 20100325
  Receipt Date: 20100318
  Transmission Date: 20100710
  Serious: Yes (Hospitalization, Other)
  Sender: FDA-Public Use
  Company Number: PHHY2010US17403

PATIENT
  Sex: Male

DRUGS (2)
  1. EXELON [Suspect]
     Dosage: 4.6 MG, QD
     Route: 062
  2. FLOMAX [Concomitant]

REACTIONS (1)
  - URINARY RETENTION [None]
